FAERS Safety Report 5202338-7 (Version None)
Quarter: 2006Q4

REPORT INFORMATION
  Report Type: 
  Country: None (occurrence: None)
  Receive Date: 20061012
  Receipt Date: 20051129
  Transmission Date: 20070319
  Serious: Yes (Other)
  Sender: FDA-Public Use
  Company Number: US-JNJFOC-20051106541

PATIENT
  Age: 87 Year
  Sex: Male
  Weight: 55.3388 kg

DRUGS (13)
  1. NESIRITIDE (NESIRITIDE) INJECTION [Suspect]
     Indication: CARDIAC FAILURE CONGESTIVE
     Dosage: 0.01 MG/KG, 1 IN 1 MINUTE; INTRAVENOUS
     Route: 042
     Dates: start: 20040326, end: 20040327
  2. AMBIEN [Concomitant]
  3. ASPIRIN [Concomitant]
  4. COREG [Concomitant]
  5. DIOVAN [Concomitant]
  6. LASIX [Concomitant]
  7. LEVAQUIN [Concomitant]
  8. LOPRESSOR [Concomitant]
  9. MEGACE [Concomitant]
  10. NEUPOGEN [Concomitant]
  11. PROTONIX [Concomitant]
  12. VASOTEC [Concomitant]
  13. ZOCOR [Concomitant]

REACTIONS (2)
  - HYPOTENSION [None]
  - INFUSION RELATED REACTION [None]
